FAERS Safety Report 8779455 (Version 1)
Quarter: 2012Q4

REPORT INFORMATION
  Report Type: 
  Country: US (occurrence: US)
  Receive Date: 20120912
  Receipt Date: 20120912
  Transmission Date: 20130627
  Serious: No
  Sender: FDA-Public Use
  Company Number: US-BAYER-2012-094787

PATIENT
  Sex: Female

DRUGS (2)
  1. MIRENA [Suspect]
     Dosage: UNK
     Dates: start: 2012, end: 20120907
  2. CONTRACEPTIVES NOS [Concomitant]
     Indication: CONTRACEPTION

REACTIONS (6)
  - Abdominal pain lower [None]
  - Device expulsion [None]
  - Muscle contractions involuntary [None]
  - Back pain [Not Recovered/Not Resolved]
  - Asthenia [Not Recovered/Not Resolved]
  - Malaise [Not Recovered/Not Resolved]
